FAERS Safety Report 9280292 (Version 1)
Quarter: 2013Q2

REPORT INFORMATION
  Report Type: Spontaneous
  Country: BR (occurrence: None)
  Receive Date: 20130507
  Receipt Date: 20130507
  Transmission Date: 20140414
  Serious: Yes (Death)
  Sender: FDA-Public Use
  Company Number: BR-1198129

PATIENT
  Age: 92 Year
  Sex: Female

DRUGS (1)
  1. TRAVATAN 0.004 % OPHTHALMIC SOLUTION (TRAVATAN 0.004%) [Suspect]
     Indication: GLAUCOMA
     Dosage: 3 YEARS
     Route: 047

REACTIONS (1)
  - Bladder cancer [None]
